FAERS Safety Report 8107303-8 (Version None)
Quarter: 2011Q4

REPORT INFORMATION
  Report Type: 
  Country: None (occurrence: None)
  Receive Date: 20111227
  Receipt Date: 20111018
  Transmission Date: 20120403
  Serious: Yes (Other)
  Sender: FDA-Public Use
  Company Number: PHEH2011US05540

PATIENT
  Age: 41 Year
  Sex: Female
  Weight: 61.6 kg

DRUGS (7)
  1. XANAX [Concomitant]
  2. VITAMIN B COMPLEX CAP [Concomitant]
  3. VITAMIN D [Concomitant]
  4. GILENYA [Suspect]
     Indication: MULTIPLE SCLEROSIS
     Dosage: 0.5 MG, QD, ORAL
     Route: 048
     Dates: start: 20110928
  5. LEXAPRO [Concomitant]
  6. OMEGA 3 FATTY ACIDS (OMEGA-3 FATTY ACIDS) [Concomitant]
  7. ADDERALL 10 [Concomitant]

REACTIONS (3)
  - ATRIOVENTRICULAR BLOCK FIRST DEGREE [None]
  - ELECTROCARDIOGRAM PR PROLONGATION [None]
  - CONDUCTION DISORDER [None]
